FAERS Safety Report 25930357 (Version 1)
Quarter: 2025Q4

REPORT INFORMATION
  Report Type: Spontaneous
  Country: US (occurrence: US)
  Receive Date: 20251016
  Receipt Date: 20251016
  Transmission Date: 20260118
  Serious: No
  Sender: ADARE PHARMACEUTICALS
  Company Number: US-ADAREPHARM-2025-US-000045

PATIENT
  Age: 93 Year
  Sex: Female

DRUGS (1)
  1. KCL [Suspect]
     Active Substance: POTASSIUM CHLORIDE
     Dates: start: 202505

REACTIONS (5)
  - Product substitution issue [Unknown]
  - Intentional product use issue [Unknown]
  - Product use complaint [Unknown]
  - Therapy interrupted [Unknown]
  - Foreign body in throat [Recovered/Resolved]
